FAERS Safety Report 15895265 (Version 4)
Quarter: 2020Q3

REPORT INFORMATION
  Report Type: Report from Study
  Country: JP (occurrence: JP)
  Receive Date: 20190131
  Receipt Date: 20200909
  Transmission Date: 20201102
  Serious: Yes (Death, Life-Threatening, Hospitalization, Other)
  Sender: FDA-Public Use
  Company Number: JP-SA-2019SA023981

PATIENT

DRUGS (20)
  1. MAINTATE [Concomitant]
     Active Substance: BISOPROLOL FUMARATE
     Dosage: 1.25 MG/DAY
     Route: 048
  2. PREDNISOLONE. [Concomitant]
     Active Substance: PREDNISOLONE
     Indication: PROPHYLAXIS
     Dosage: 10 MG/DAY
     Route: 048
     Dates: start: 20171222, end: 20180326
  3. MAINTATE [Concomitant]
     Active Substance: BISOPROLOL FUMARATE
     Indication: BASEDOW^S DISEASE
     Dosage: 1.25 MG/DAY
     Route: 048
     Dates: start: 20170911, end: 20171229
  4. PREDNISOLONE. [Concomitant]
     Active Substance: PREDNISOLONE
     Indication: PROPHYLAXIS
  5. LOPEMIN [LOPERAMIDE HYDROCHLORIDE] [Concomitant]
     Active Substance: LOPERAMIDE HYDROCHLORIDE
     Indication: DIARRHOEA
     Dosage: 4 MG/DAY, PRN
     Route: 048
  6. VANDETANIB. [Suspect]
     Active Substance: VANDETANIB
     Dosage: DAILY DOSE: 300 MG
     Route: 048
     Dates: start: 20170314, end: 20171221
  7. IRRIBOW [Concomitant]
     Active Substance: RAMOSETRON HYDROCHLORIDE
     Indication: MEDULLARY THYROID CANCER
  8. URSO [Concomitant]
     Active Substance: URSODIOL
     Indication: METASTASES TO LIVER
     Dosage: 150 MG/DAY
     Route: 048
     Dates: start: 20170130, end: 20180326
  9. CODEINE PHOSPHATE [Concomitant]
     Active Substance: CODEINE PHOSPHATE
     Indication: DIARRHOEA
     Dosage: 60 MG/DAY, SELF?MAKING
     Route: 048
  10. HIRUDOID [Concomitant]
     Active Substance: GLYCOSAMINOGLYCANS
     Indication: PROPHYLAXIS
     Dosage: 50 G/TUBE, TOPICAL
     Route: 065
     Dates: start: 20170111, end: 20180224
  11. FLOMOX [CEFCAPENE PIVOXIL HYDROCHLORIDE] [Concomitant]
     Active Substance: CEFCAPENE PIVOXIL HYDROCHLORIDE
     Indication: LOCALISED INFECTION
     Dosage: UNK
     Route: 048
     Dates: start: 20180221, end: 20180222
  12. VANDETANIB. [Suspect]
     Active Substance: VANDETANIB
     Indication: MEDULLARY THYROID CANCER
     Dosage: DAILY DOSE: 200 MG
     Route: 048
     Dates: start: 20171222, end: 20180218
  13. VANDETANIB. [Suspect]
     Active Substance: VANDETANIB
     Dosage: DAILY DOSE: 100 MG
     Route: 048
     Dates: start: 20180219, end: 20180223
  14. IRRIBOW [Concomitant]
     Active Substance: RAMOSETRON HYDROCHLORIDE
     Indication: DIARRHOEA
     Dosage: 5 ?G/DAY
     Route: 048
     Dates: start: 20170124, end: 20180326
  15. MIYA?BM [Concomitant]
     Active Substance: CLOSTRIDIUM BUTYRICUM SPORES STRAIN M-55
     Indication: DIARRHOEA
     Dosage: 3 TABLETS/DAY, PRN
     Route: 048
  16. PASTARON [Concomitant]
     Active Substance: UREA
     Indication: PROPHYLAXIS
     Dosage: 25 G/TUBE, TOPICAL
     Route: 065
     Dates: start: 20170111, end: 20180224
  17. AMPHOTERICIN B/TETRACYCLINE [Suspect]
     Active Substance: AMPHOTERICIN B\TETRACYCLINE
     Indication: INTERSTITIAL LUNG DISEASE
     Dosage: UNK
     Route: 041
     Dates: start: 20180224, end: 20180312
  18. POTASSIUM IODIDE. [Concomitant]
     Active Substance: POTASSIUM IODIDE
     Indication: BASEDOW^S DISEASE
     Dosage: 1 PILL/DAY
     Route: 048
  19. UREPEARL [Concomitant]
     Active Substance: UREA
     Indication: PROPHYLAXIS
     Dosage: TOPICAL
     Route: 065
  20. TAKEPRON [Concomitant]
     Active Substance: LANSOPRAZOLE
     Indication: PROPHYLAXIS
     Dosage: 30 MG/DAY
     Route: 048
     Dates: start: 20171222, end: 20180326

REACTIONS (7)
  - Muscular weakness [Unknown]
  - Oedema peripheral [Recovering/Resolving]
  - Interstitial lung disease [Recovering/Resolving]
  - Acne [Recovering/Resolving]
  - Back pain [Unknown]
  - Hepatic failure [Fatal]
  - Hypokalaemia [Recovered/Resolved]

NARRATIVE: CASE EVENT DATE: 20171224
